FAERS Safety Report 5378222-5 (Version None)
Quarter: 2007Q3

REPORT INFORMATION
  Report Type: 
  Country: None (occurrence: None)
  Receive Date: 20070705
  Receipt Date: 20070622
  Transmission Date: 20080115
  Serious: Yes (Other)
  Sender: FDA-Public Use
  Company Number: US-JNJFOC-20070605770

PATIENT
  Age: 4 Year
  Sex: Female
  Weight: 25.86 kg

DRUGS (2)
  1. DITROPAN [Suspect]
     Indication: BLADDER SPASM
     Route: 048
  2. BENADRYL [Concomitant]
     Route: 065

REACTIONS (5)
  - AGITATION [None]
  - DRY MOUTH [None]
  - HALLUCINATION [None]
  - RESTLESSNESS [None]
  - TREMOR [None]
